FAERS Safety Report 7023657-8 (Version None)
Quarter: 2010Q3

REPORT INFORMATION
  Report Type: 
  Country: None (occurrence: None)
  Receive Date: 20100929
  Receipt Date: 20100929
  Transmission Date: 20110219
  Serious: Yes (Hospitalization)
  Sender: FDA-Public Use
  Company Number: None

PATIENT
  Age: 69 Year
  Sex: Male
  Weight: 81 kg

DRUGS (1)
  1. MOXIFLOXACIN [Suspect]
     Dosage: 400 MG ONCE IV
     Route: 042
     Dates: start: 20100721, end: 20100721

REACTIONS (1)
  - CONVULSION [None]
